FAERS Safety Report 5800167-4 (Version None)
Quarter: 2008Q3

REPORT INFORMATION
  Report Type: 
  Country: None (occurrence: None)
  Receive Date: 20080703
  Receipt Date: 20080625
  Transmission Date: 20090109
  Serious: Yes (Death)
  Sender: FDA-Public Use
  Company Number: FR-AVENTIS-200812419FR

PATIENT
  Age: 76 Year
  Sex: Female

DRUGS (5)
  1. LOVENOX [Suspect]
     Indication: ATRIAL FIBRILLATION
     Route: 058
     Dates: start: 20080523, end: 20080524
  2. HEPARIN [Suspect]
     Indication: ATRIAL FIBRILLATION
     Dosage: DOSE QUANTITY: 240; DAILY DOSE UNIT: MILLIGRAM PER 24 HOURS
     Route: 041
     Dates: start: 20080515, end: 20080522
  3. LASIX [Concomitant]
     Indication: CARDIAC FAILURE
  4. DIGOXIN [Concomitant]
     Indication: CARDIAC FAILURE
  5. CORDARONE [Concomitant]
     Indication: ATRIAL FIBRILLATION

REACTIONS (3)
  - CEREBRAL ISCHAEMIA [None]
  - HEPARIN-INDUCED THROMBOCYTOPENIA [None]
  - PERIPHERAL ISCHAEMIA [None]
